FAERS Safety Report 6646739-9 (Version None)
Quarter: 2010Q1

REPORT INFORMATION
  Report Type: 
  Country: None (occurrence: None)
  Receive Date: 20100317
  Receipt Date: 20100302
  Transmission Date: 20100710
  Serious: Yes (Hospitalization)
  Sender: FDA-Public Use
  Company Number: 2010000758

PATIENT
  Age: 80 Year
  Sex: Female

DRUGS (19)
  1. TARCEVA [Suspect]
     Indication: NON-SMALL CELL LUNG CANCER METASTATIC
     Dosage: 150 MG, QD, ORAL
     Route: 048
     Dates: start: 20100120, end: 20100209
  2. METOPROLOL (METOPROLOL) [Concomitant]
  3. ZOFRAN [Concomitant]
  4. PROTONIX [Concomitant]
  5. POTASSIUM (POTASSIUM) [Concomitant]
  6. LEVAQUIN [Concomitant]
  7. PROPAFENONE HYDROCHLORIDE [Concomitant]
  8. LOVASTATIN [Concomitant]
  9. PREVACID [Concomitant]
  10. VALIUM [Concomitant]
  11. SOMA (CARISOPROLOL) [Concomitant]
  12. ASPIRIN [Concomitant]
  13. METAMUCIL-2 [Concomitant]
  14. HUMULIN R [Concomitant]
  15. SIMVASTATIN [Concomitant]
  16. ENOXAPARIN SODIUM [Concomitant]
  17. LEVAQUIN [Concomitant]
  18. ALLOPURINOL [Concomitant]
  19. TEGASEROD (TEGASEROD) [Concomitant]

REACTIONS (1)
  - CONVULSION [None]
